FAERS Safety Report 8579253-4 (Version None)
Quarter: 2012Q3

REPORT INFORMATION
  Report Type: 
  Country: None (occurrence: None)
  Receive Date: 20120808
  Receipt Date: 20120802
  Transmission Date: 20120928
  Serious: Yes (Hospitalization, Other)
  Sender: FDA-Public Use
  Company Number: US-JNJFOC-20120708771

PATIENT
  Age: 63 Year
  Sex: Male
  Weight: 71.67 kg

DRUGS (3)
  1. TYLENOL [Suspect]
     Indication: PAIN
     Dosage: 12 CAPLETS IN 1 DAY
     Route: 048
  2. TYLENOL [Suspect]
     Route: 048
  3. AN UNKNOWN MEDICATION [Concomitant]
     Route: 065

REACTIONS (2)
  - LIVER INJURY [None]
  - OVERDOSE [None]
